FAERS Safety Report 11541505 (Version 1)
Quarter: 2015Q3

REPORT INFORMATION
  Report Type: Spontaneous
  Country: US (occurrence: US)
  Receive Date: 20150923
  Receipt Date: 20150923
  Transmission Date: 20151125
  Serious: Yes (Other)
  Sender: FDA-Public Use
  Company Number: US-009507513-1509USA011846

PATIENT
  Age: 9 Month
  Sex: Female

DRUGS (5)
  1. SABRIL [Suspect]
     Active Substance: VIGABATRIN
     Dosage: 20 ML (10 ML, 2 IN 1 D)
     Route: 048
     Dates: start: 20150901
  2. NUVARING [Suspect]
     Active Substance: ETHINYL ESTRADIOL\ETONOGESTREL
     Indication: MATERNAL EXPOSURE TIMING UNSPECIFIED
     Dosage: UNK
     Route: 063
     Dates: start: 20150830
  3. SABRIL [Suspect]
     Active Substance: VIGABATRIN
     Dosage: 12 ML (6 ML, 2 IN 1 D)
     Route: 048
     Dates: start: 20150729, end: 2015
  4. SABRIL [Suspect]
     Active Substance: VIGABATRIN
     Indication: INFANTILE SPASMS
     Dosage: 8 ML (4 ML, 2 IN 1 D)
     Route: 048
     Dates: start: 20150725, end: 201507
  5. SABRIL [Suspect]
     Active Substance: VIGABATRIN
     Dosage: 16 ML (8 ML, 2 IN 1 D)
     Route: 048
     Dates: start: 201508, end: 2015

REACTIONS (2)
  - Exposure during breast feeding [Unknown]
  - Seizure [Not Recovered/Not Resolved]

NARRATIVE: CASE EVENT DATE: 2015
